FAERS Safety Report 8852245 (Version 1)
Quarter: 2012Q4

REPORT INFORMATION
  Report Type: 
  Country: US (occurrence: US)
  Receive Date: 20121022
  Receipt Date: 20121022
  Transmission Date: 20130627
  Serious: No
  Sender: FDA-Public Use
  Company Number: US-MYLANLABS-2011S1026006

PATIENT
  Age: 65 Year
  Sex: Female

DRUGS (8)
  1. CARVEDILOL [Suspect]
     Indication: HYPERTENSION
     Route: 048
     Dates: start: 20111031, end: 20111205
  2. CARVEDILOL [Suspect]
     Indication: MYOCARDIAL INFARCTION
     Route: 048
     Dates: start: 20111031, end: 20111205
  3. CARVEDILOL [Suspect]
     Indication: HYPERTENSION
     Route: 048
     Dates: start: 20111206, end: 20111207
  4. CARVEDILOL [Suspect]
     Indication: MYOCARDIAL INFARCTION
     Route: 048
     Dates: start: 20111206, end: 20111207
  5. BENICAR [Concomitant]
  6. NIASPAN [Concomitant]
  7. BAYER ASPIRIN [Concomitant]
  8. CALCIUM [Concomitant]

REACTIONS (9)
  - Psoriasis [Recovered/Resolved]
  - Gastrointestinal motility disorder [Recovered/Resolved]
  - Hypoaesthesia oral [Recovered/Resolved]
  - Dry mouth [Recovered/Resolved]
  - Abnormal dreams [Recovered/Resolved]
  - Constipation [Recovered/Resolved]
  - Chest discomfort [Recovered/Resolved]
  - Feeling abnormal [Recovered/Resolved]
  - Reaction to drug excipients [Recovered/Resolved]
